FAERS Safety Report 13432300 (Version 2)
Quarter: 2017Q3

REPORT INFORMATION
  Report Type: Spontaneous
  Country: US (occurrence: US)
  Receive Date: 20170412
  Receipt Date: 20170707
  Transmission Date: 20171127
  Serious: Yes (Hospitalization)
  Sender: FDA-Public Use
  Company Number: US-JNJFOC-20170325732

PATIENT
  Age: 58 Year
  Sex: Female

DRUGS (3)
  1. XARELTO [Suspect]
     Active Substance: RIVAROXABAN
     Indication: DEEP VEIN THROMBOSIS
     Dosage: VARYING DOSES OF 15 AND 20 MG
     Route: 048
     Dates: start: 20150126, end: 20150424
  2. NEXIUM [Concomitant]
     Active Substance: ESOMEPRAZOLE MAGNESIUM
     Route: 065
     Dates: start: 2011, end: 2016
  3. LEVOTHYROXINE. [Concomitant]
     Active Substance: LEVOTHYROXINE
     Route: 065
     Dates: start: 2013, end: 2016

REACTIONS (1)
  - Gastrointestinal haemorrhage [Recovering/Resolving]

NARRATIVE: CASE EVENT DATE: 20150424
